FAERS Safety Report 8916050 (Version 2)
Quarter: 2012Q4

REPORT INFORMATION
  Report Type: Report from Study
  Country: JP (occurrence: JP)
  Receive Date: 20121119
  Receipt Date: 20121127
  Transmission Date: 20130627
  Serious: Yes (Other)
  Sender: FDA-Public Use
  Company Number: JP-VERTEX PHARMACEUTICAL INC.-AE-2012-011388

PATIENT
  Age: 48 Year
  Sex: Male

DRUGS (11)
  1. VX-950 (TELAPREVIR) [Suspect]
     Indication: CHRONIC HEPATITIS C
     Dosage: 2250 mg, qd
     Route: 048
     Dates: start: 20120127, end: 20120419
  2. RIBAVIRIN [Suspect]
     Indication: CHRONIC HEPATITIS C
     Dosage: 1000 mg, qd
     Route: 048
     Dates: start: 20120127, end: 20120311
  3. RIBAVIRIN [Suspect]
     Dosage: 800 mg, qd
     Route: 048
     Dates: start: 20120312, end: 20120315
  4. RIBAVIRIN [Suspect]
     Dosage: 600 mg, qd
     Route: 048
     Dates: start: 20120316, end: 20120511
  5. RIBAVIRIN [Suspect]
     Dosage: 700 mg, qd
     Route: 048
     Dates: start: 20120512, end: 20120517
  6. RIBAVIRIN [Suspect]
     Dosage: 800 mg, qd
     Route: 048
     Dates: start: 20120518, end: 20120614
  7. RIBAVIRIN [Suspect]
     Dosage: 1000 mg, qd
     Route: 048
     Dates: start: 20120615, end: 20120705
  8. PEGINTERFERON ALFA-2B [Suspect]
     Indication: CHRONIC HEPATITIS C
     Dosage: 1.5 ?g/kg, qw
     Route: 058
     Dates: start: 20120127, end: 20120629
  9. LOCOID [Concomitant]
     Dosage: UNK, prn
     Route: 061
     Dates: start: 20120210, end: 20120419
  10. LORFENAMIN [Concomitant]
     Dosage: 180 mg, qd
     Route: 048
     Dates: start: 20120217, end: 20120310
  11. UREPEARL [Concomitant]
     Dosage: UNK, prn
     Route: 061
     Dates: start: 20120210, end: 20120419

REACTIONS (1)
  - Retinal haemorrhage [Recovered/Resolved]
